FAERS Safety Report 4650042-6 (Version None)
Quarter: 2005Q2

REPORT INFORMATION
  Report Type: 
  Country: None (occurrence: None)
  Receive Date: 20050502
  Receipt Date: 20050425
  Transmission Date: 20051028
  Serious: Yes (Other)
  Sender: FDA-Public Use
  Company Number: US-JNJFOC-20050103649

PATIENT
  Sex: Female

DRUGS (1)
  1. DURAGESIC-100 [Suspect]
     Route: 062

REACTIONS (3)
  - BLOOD POTASSIUM DECREASED [None]
  - DIARRHOEA [None]
  - RETCHING [None]
